FAERS Safety Report 6579603-4 (Version None)
Quarter: 2010Q1

REPORT INFORMATION
  Report Type: 
  Country: None (occurrence: None)
  Receive Date: 20100212
  Receipt Date: 20100209
  Transmission Date: 20100710
  Serious: Yes (Death, Hospitalization)
  Sender: FDA-Public Use
  Company Number: HK-BAYER-201010921GPV

PATIENT
  Age: 74 Year
  Sex: Male
  Weight: 87 kg

DRUGS (10)
  1. SORAFENIB [Suspect]
     Indication: HEPATIC NEOPLASM MALIGNANT
     Route: 048
     Dates: start: 20091214, end: 20091230
  2. ERLOTINIB OR PLACEBO [Suspect]
     Indication: HEPATIC NEOPLASM MALIGNANT
     Route: 048
     Dates: start: 20091214, end: 20091230
  3. AMILORIDE HYDROCHLORIDE [Concomitant]
     Indication: HYPERTENSION
     Route: 048
     Dates: start: 20090415
  4. ESSENTIALE [Concomitant]
     Indication: HEPATIC CIRRHOSIS
     Route: 048
     Dates: start: 20090415
  5. PEPCID [Concomitant]
     Indication: GASTRIC ULCER
     Route: 048
     Dates: start: 20100106, end: 20100108
  6. PEPCID [Concomitant]
     Route: 048
     Dates: start: 20091118
  7. LACTULOSE [Concomitant]
     Indication: PROPHYLAXIS
     Route: 048
     Dates: start: 20090724, end: 20100108
  8. LACTULOSE [Concomitant]
     Route: 048
     Dates: start: 20090426
  9. PROPRANOLOL [Concomitant]
     Indication: BLOOD PRESSURE MANAGEMENT
     Route: 048
     Dates: start: 20090515
  10. FLEET [Concomitant]
     Indication: CONSTIPATION
     Dosage: 45FL OZ
     Route: 054
     Dates: start: 20100108, end: 20100108

REACTIONS (2)
  - CONFUSIONAL STATE [None]
  - HEPATIC ENCEPHALOPATHY [None]
